FAERS Safety Report 10776664 (Version 1)
Quarter: 2015Q1

REPORT INFORMATION
  Report Type: Spontaneous
  Country: US (occurrence: US)
  Receive Date: 20150209
  Receipt Date: 20150209
  Transmission Date: 20150721
  Serious: No
  Sender: FDA-Public Use
  Company Number: US-GLAXOSMITHKLINE-A1070386A

PATIENT

DRUGS (7)
  1. SUMATRIPTAN. [Suspect]
     Active Substance: SUMATRIPTAN
  2. CALCIUM [Concomitant]
     Active Substance: CALCIUM
  3. SUMATRIPTAN. [Suspect]
     Active Substance: SUMATRIPTAN
  4. SUMATRIPTAN. [Suspect]
     Active Substance: SUMATRIPTAN
     Indication: MIGRAINE
     Dosage: 6MG KIT
     Route: 065
  5. SUMATRIPTAN. [Suspect]
     Active Substance: SUMATRIPTAN
  6. SUMATRIPTAN. [Suspect]
     Active Substance: SUMATRIPTAN
  7. PREMARIN CREAM [Concomitant]

REACTIONS (3)
  - Injection site haemorrhage [Recovered/Resolved]
  - Injection site pain [Recovered/Resolved]
  - Product quality issue [Unknown]
